FAERS Safety Report 14807480 (Version 1)
Quarter: 2018Q2

REPORT INFORMATION
  Report Type: Spontaneous
  Country: NL (occurrence: NL)
  Receive Date: 20180425
  Receipt Date: 20180425
  Transmission Date: 20180711
  Serious: Yes (Life-Threatening)
  Sender: FDA-Public Use
  Company Number: NL-TEVA-2018-NL-885884

PATIENT
  Age: 84 Year
  Sex: Male
  Weight: 59 kg

DRUGS (5)
  1. ZINKOXIDE [Concomitant]
     Route: 065
  2. MACROGOL/ZOUTEN [Concomitant]
     Dosage: 3X PER WEEK 1 STUK
     Route: 065
  3. PARACETAMOL [Concomitant]
     Active Substance: ACETAMINOPHEN
     Dosage: 1000 MILLIGRAM DAILY; 3 DD 2 TABL VAN 500MG (= 1000 MG)
  4. COLECALCIFEROL [Concomitant]
     Active Substance: CHOLECALCIFEROL
     Dosage: 1 X PER WEEK 1 TABL VAN 5600IE
     Route: 065
  5. QUETIAPINE TABLET MGA 50MG TABLET MET GEREGULEERDE AFGIFTE, 50 MG (MI [Suspect]
     Active Substance: QUETIAPINE
     Indication: HALLUCINATION
     Dosage: 2X PER DAG 1 STUKS
     Route: 065
     Dates: start: 20180106, end: 20180116

REACTIONS (3)
  - Disturbance in attention [Recovered/Resolved]
  - Asthenia [Recovered/Resolved]
  - Somnolence [Recovered/Resolved]

NARRATIVE: CASE EVENT DATE: 20180108
